FAERS Safety Report 25311425 (Version 1)
Quarter: 2025Q2

REPORT INFORMATION
  Report Type: Spontaneous
  Country: RO (occurrence: RO)
  Receive Date: 20250514
  Receipt Date: 20250514
  Transmission Date: 20250717
  Serious: Yes (Other)
  Sender: ABBVIE
  Company Number: RO-VIIV HEALTHCARE-RO2025EME051511

PATIENT
  Age: 21 Year
  Sex: Male

DRUGS (3)
  1. RITONAVIR [Suspect]
     Active Substance: RITONAVIR
     Indication: HIV infection
     Route: 048
     Dates: start: 2012, end: 2016
  2. LAMIVUDINE\ZIDOVUDINE [Suspect]
     Active Substance: LAMIVUDINE\ZIDOVUDINE
     Indication: HIV infection
     Dosage: 1 DF, BID
     Route: 065
     Dates: start: 2012, end: 2016
  3. DARUNAVIR [Suspect]
     Active Substance: DARUNAVIR
     Indication: HIV infection
     Route: 065
     Dates: start: 2012, end: 2016

REACTIONS (4)
  - Neutropenia [Recovered/Resolved]
  - Pathogen resistance [Recovered/Resolved]
  - Virologic failure [Recovered/Resolved]
  - Anaemia [Recovered/Resolved]
